FAERS Safety Report 7112109-2 (Version None)
Quarter: 2010Q4

REPORT INFORMATION
  Report Type: 
  Country: None (occurrence: None)
  Receive Date: 20101119
  Receipt Date: 20091105
  Transmission Date: 20110411
  Serious: No
  Sender: FDA-Public Use
  Company Number: A0815414A

PATIENT
  Age: 68 Year
  Sex: Male

DRUGS (13)
  1. AVODART [Suspect]
     Dosage: .5MG PER DAY
     Route: 048
     Dates: start: 20091102, end: 20091102
  2. OMEPRAZOLE [Concomitant]
  3. SAW PALMETTO [Concomitant]
  4. LYCOPENE [Concomitant]
  5. MULTI-VITAMIN [Concomitant]
  6. NORVASC [Concomitant]
  7. CALCIUM [Concomitant]
  8. AVAPRO [Concomitant]
  9. TOPROL-XL [Concomitant]
  10. FISH OIL [Concomitant]
  11. ASPIRIN [Concomitant]
  12. LUTIN (UNSPECIFIED) [Concomitant]
  13. MULTIMAX [Concomitant]

REACTIONS (6)
  - CHILLS [None]
  - INSOMNIA [None]
  - MUSCULOSKELETAL PAIN [None]
  - NAUSEA [None]
  - NECK PAIN [None]
  - NOCTURIA [None]
